FAERS Safety Report 25587102 (Version 1)
Quarter: 2025Q3

REPORT INFORMATION
  Report Type: Spontaneous
  Country: US (occurrence: US)
  Receive Date: 20250721
  Receipt Date: 20250721
  Transmission Date: 20251020
  Serious: No
  Sender: Phathom Pharmaceuticals
  Company Number: US-PHATHOM PHARMACEUTICALS INC.-2025PHT01297

PATIENT
  Age: 52 Year
  Sex: Female

DRUGS (5)
  1. VOQUEZNA [Suspect]
     Active Substance: VONOPRAZAN FUMARATE
     Route: 048
     Dates: start: 20250418, end: 20250428
  2. DEXILANT [Concomitant]
     Active Substance: DEXLANSOPRAZOLE
  3. CLONAZEPAM [Concomitant]
     Active Substance: CLONAZEPAM
  4. METHIMAZOLE [Concomitant]
     Active Substance: METHIMAZOLE
  5. IMITREX [Concomitant]
     Active Substance: SUMATRIPTAN SUCCINATE

REACTIONS (2)
  - Pruritus [Unknown]
  - Abdominal pain upper [Unknown]

NARRATIVE: CASE EVENT DATE: 20250401
